FAERS Safety Report 5446804-8 (Version None)
Quarter: 2007Q3

REPORT INFORMATION
  Report Type: 
  Country: None (occurrence: None)
  Receive Date: 20070802
  Receipt Date: 20070521
  Transmission Date: 20080115
  Serious: Yes (Other)
  Sender: FDA-Public Use
  Company Number: MIN-00183

PATIENT
  Sex: Female

DRUGS (2)
  1. MINOCYCLINE HCL [Suspect]
     Indication: ACNE
     Dosage: UNK. DOSE, UNK. FREQUENCY, PO
     Route: 048
  2. MINOCYCLINE HCL [Suspect]
     Indication: ACNE
     Dosage: UNK. DOSE, UNK. FREQUENCY, PO
     Route: 048

REACTIONS (2)
  - LIVEDO RETICULARIS [None]
  - SYSTEMIC LUPUS ERYTHEMATOSUS [None]
